FAERS Safety Report 4810818-9 (Version None)
Quarter: 2005Q4

REPORT INFORMATION
  Report Type: 
  Country: None (occurrence: None)
  Receive Date: 20051024
  Receipt Date: 20051012
  Transmission Date: 20060501
  Serious: Yes (Death)
  Sender: FDA-Public Use
  Company Number: USA-2005-0021553

PATIENT
  Age: 39 Year
  Sex: 0

DRUGS (4)
  1. OXYCODONE HYDROCHLORIDE (SIMILAR TO NDA 20-552)(OXYCODONE HYDROCHLORID [Suspect]
  2. ACETAMINOPHEN [Suspect]
  3. HYDROCODONE BITARTRATE [Suspect]
  4. DIAZEPAM [Suspect]

REACTIONS (1)
  - DEATH [None]
